FAERS Safety Report 14235475 (Version 1)
Quarter: 2017Q4

REPORT INFORMATION
  Report Type: Report from Study
  Country: JP (occurrence: JP)
  Receive Date: 20171129
  Receipt Date: 20171129
  Transmission Date: 20180321
  Serious: Yes (Other)
  Sender: FDA-Public Use
  Company Number: JP-CIPLA LTD.-2017JP21213

PATIENT

DRUGS (3)
  1. THERACURMIN [Suspect]
     Active Substance: CURCUMIN\DIETARY SUPPLEMENT
     Indication: HEPATOBILIARY CANCER
     Dosage: 200 MG, UNK
     Route: 048
  2. GEMCITABINE [Suspect]
     Active Substance: GEMCITABINE\GEMCITABINE HYDROCHLORIDE
     Indication: HEPATOBILIARY CANCER
     Dosage: 1000 MG/M2, ON DAY 1 AND 8
     Route: 042
  3. TS-1 [Suspect]
     Active Substance: GIMERACIL\OTERACIL\TEGAFUR
     Indication: HEPATOBILIARY CANCER
     Dosage: 60 TO 80 MG/M2 FOR 14 CONSECUTIVE DAYS AND REPEATED EVERY 3 WEEKS
     Route: 048

REACTIONS (4)
  - Disease progression [Unknown]
  - Bile duct cancer [None]
  - Malignant neoplasm progression [None]
  - Treatment failure [Unknown]
